FAERS Safety Report 9463211 (Version 1)
Quarter: 2013Q3

REPORT INFORMATION
  Report Type: Spontaneous
  Country: RU (occurrence: RU)
  Receive Date: 20130818
  Receipt Date: 20130818
  Transmission Date: 20140515
  Serious: Yes (Death, Hospitalization, Other)
  Sender: FDA-Public Use
  Company Number: PHHY2013RU087554

PATIENT
  Age: 6 Month
  Sex: Male

DRUGS (6)
  1. METHOTREXATE [Suspect]
     Indication: CHEMOTHERAPY
     Dosage: 5 G/M2 FOR 24 HOURS ON DAY 5 (RATED DOSE 1.8G)
  2. VINCRISTINE [Concomitant]
     Indication: CHEMOTHERAPY
  3. CARBOPLATIN [Concomitant]
     Indication: CHEMOTHERAPY
  4. ETOPOSIDE [Concomitant]
     Indication: CHEMOTHERAPY
  5. CYCLOPHOSPHAMIDE [Concomitant]
     Indication: CHEMOTHERAPY
  6. FOLINIC ACID [Concomitant]

REACTIONS (9)
  - Cardiopulmonary failure [Fatal]
  - General physical health deterioration [Unknown]
  - Melaena [Not Recovered/Not Resolved]
  - Erythema [Not Recovered/Not Resolved]
  - Mucosal inflammation [Not Recovered/Not Resolved]
  - Pancytopenia [Not Recovered/Not Resolved]
  - Mouth haemorrhage [Not Recovered/Not Resolved]
  - Vomiting [Not Recovered/Not Resolved]
  - Drug level increased [Unknown]
